FAERS Safety Report 8561654-1 (Version None)
Quarter: 2012Q3

REPORT INFORMATION
  Report Type: 
  Country: None (occurrence: None)
  Receive Date: 20120802
  Receipt Date: 20120622
  Transmission Date: 20120928
  Serious: No
  Sender: FDA-Public Use
  Company Number: US-ASTRAZENECA-2012SE42413

PATIENT
  Age: 64 Year
  Sex: Female
  Weight: 65.8 kg

DRUGS (5)
  1. PRILOSEC [Suspect]
     Indication: DYSPEPSIA
     Route: 048
  2. PRILOSEC [Suspect]
     Indication: HERNIA
     Route: 048
  3. NEXIUM [Suspect]
     Indication: DYSPEPSIA
     Route: 048
     Dates: start: 20060101
  4. PREMARIN [Concomitant]
     Indication: HORMONE REPLACEMENT THERAPY
  5. NEXIUM [Suspect]
     Indication: HERNIA
     Route: 048
     Dates: start: 20060101

REACTIONS (3)
  - OFF LABEL USE [None]
  - OESOPHAGITIS [None]
  - DRUG INEFFECTIVE FOR UNAPPROVED INDICATION [None]
